FAERS Safety Report 16383244 (Version 1)
Quarter: 2019Q2

REPORT INFORMATION
  Report Type: Report from Study
  Country: FR (occurrence: FR)
  Receive Date: 20190603
  Receipt Date: 20190603
  Transmission Date: 20190711
  Serious: Yes (Other)
  Sender: FDA-Public Use
  Company Number: FR-ROCHE-2323653

PATIENT
  Age: 57 Year
  Sex: Female

DRUGS (1)
  1. ATEZOLIZUMAB. [Suspect]
     Active Substance: ATEZOLIZUMAB
     Indication: ADENOCARCINOMA OF SALIVARY GLAND
     Route: 041

REACTIONS (4)
  - Punctate keratitis [Recovering/Resolving]
  - Conjunctivitis [Recovering/Resolving]
  - Conjunctival scar [Recovering/Resolving]
  - Lichen planus [Unknown]
